FAERS Safety Report 5061398-7 (Version None)
Quarter: 2006Q3

REPORT INFORMATION
  Report Type: 
  Country: None (occurrence: None)
  Receive Date: 20060719
  Receipt Date: 20060719
  Transmission Date: 20061208
  Serious: Yes (Hospitalization)
  Sender: FDA-Public Use
  Company Number: None

PATIENT
  Age: 56 Year
  Sex: Male

DRUGS (7)
  1. WARFARIN SODIUM [Suspect]
     Dosage: 10 MG MWF + 5 MG TTSA SU
     Dates: start: 20031001
  2. PLAVIX [Concomitant]
  3. SYNTHROID [Concomitant]
  4. OMEPRAZOLE [Concomitant]
  5. BUPROPION HCL [Concomitant]
  6. GUAIFENSIN [Concomitant]
  7. ASPIRIN [Concomitant]

REACTIONS (1)
  - HAEMATURIA [None]
